FAERS Safety Report 7716750-5 (Version None)
Quarter: 2011Q3

REPORT INFORMATION
  Report Type: 
  Country: None (occurrence: None)
  Receive Date: 20110829
  Receipt Date: 20110819
  Transmission Date: 20111222
  Serious: Yes (Other)
  Sender: FDA-Public Use
  Company Number: JP-ASTRAZENECA-2011SE51075

PATIENT
  Age: 88 Year

DRUGS (1)
  1. SEROQUEL [Suspect]
     Route: 048

REACTIONS (4)
  - OFF LABEL USE [None]
  - OXYGEN SATURATION DECREASED [None]
  - ASTHENIA [None]
  - SOMNOLENCE [None]
